FAERS Safety Report 7741238-5 (Version None)
Quarter: 2011Q3

REPORT INFORMATION
  Report Type: 
  Country: None (occurrence: None)
  Receive Date: 20110909
  Receipt Date: 20110831
  Transmission Date: 20111222
  Serious: Yes (Disabling)
  Sender: FDA-Public Use
  Company Number: DE-ASTRAZENECA-2011SE52162

PATIENT
  Age: 68 Year
  Sex: Female
  Weight: 83 kg

DRUGS (2)
  1. ARIMIDEX [Suspect]
     Indication: BREAST CANCER
     Dosage: 1X1
     Route: 048
     Dates: start: 20100401, end: 20110101
  2. BISOHEXAL PLUS 10/25 [Concomitant]
     Dosage: 1/2 TABLETTE TAGLICH
     Route: 048
     Dates: end: 20110101

REACTIONS (4)
  - GASTROENTERITIS [None]
  - JAUNDICE [None]
  - HEPATITIS TOXIC [None]
  - GENERAL PHYSICAL HEALTH DETERIORATION [None]
